FAERS Safety Report 8966017 (Version 2)
Quarter: 2013Q1

REPORT INFORMATION
  Report Type: Other
  Country: TR (occurrence: TR)
  Receive Date: 20121217
  Receipt Date: 20130123
  Transmission Date: 20140127
  Serious: Yes (Hospitalization)
  Sender: FDA-Public Use
  Company Number: TR-BRISTOL-MYERS SQUIBB COMPANY-17184409

PATIENT
  Age: 74 Year
  Sex: Female

DRUGS (1)
  1. WARFARIN SODIUM [Suspect]
     Indication: THROMBOSIS PROPHYLAXIS

REACTIONS (3)
  - Muscle haemorrhage [Recovering/Resolving]
  - Monoparesis [Unknown]
  - Paraesthesia [Not Recovered/Not Resolved]
